FAERS Safety Report 8232980-0 (Version None)
Quarter: 2012Q1

REPORT INFORMATION
  Report Type: 
  Country: None (occurrence: None)
  Receive Date: 20120326
  Receipt Date: 20120313
  Transmission Date: 20120608
  Serious: Yes (Other)
  Sender: FDA-Public Use
  Company Number: US-JNJCP-30000095397

PATIENT
  Age: 19 Year
  Sex: Female
  Weight: 53 kg

DRUGS (4)
  1. NTG SKIN ID CREAM CLEANSER USA NTSICCUS [Suspect]
     Indication: ACNE
     Dosage: PEA SIZE AMOUNT, ONCE DAILY
     Route: 061
     Dates: start: 20120309, end: 20120310
  2. DEPO [Concomitant]
     Dosage: ONE SHOT EVERY 3 MONTH SINCE THREE MONTHS
  3. NTG SKIN ID (72) HYDRATOR USA NTSIHYUS [Suspect]
     Indication: ACNE
     Dosage: PEA SIZE AMOUNT ONCE DAILY
     Route: 061
     Dates: start: 20120309, end: 20120310
  4. NTG SKIN ID ANTI ACNE TREATMENT USA NTSIAAUS [Suspect]
     Indication: ACNE
     Dosage: PEA SIZE AMOUNT, ONCE DAILY
     Route: 061
     Dates: start: 20120309, end: 20120310

REACTIONS (3)
  - APPLICATION SITE URTICARIA [None]
  - APPLICATION SITE RASH [None]
  - APPLICATION SITE SWELLING [None]
